FAERS Safety Report 10024449 (Version 1)
Quarter: 2014Q1

REPORT INFORMATION
  Report Type: Spontaneous
  Country: US (occurrence: US)
  Receive Date: 20140320
  Receipt Date: 20140320
  Transmission Date: 20141002
  Serious: No
  Sender: FDA-Public Use
  Company Number: US-ENDO PHARMACEUTICALS INC.-OPCR20130446

PATIENT
  Sex: Male

DRUGS (2)
  1. OPANA ER 40MG [Suspect]
     Indication: PAIN
     Route: 048
     Dates: start: 201309, end: 2013
  2. OPANA ER 40MG [Suspect]
     Route: 048
     Dates: start: 2013

REACTIONS (1)
  - Drug effect decreased [Unknown]
